FAERS Safety Report 5680301-X (Version None)
Quarter: 2008Q1

REPORT INFORMATION
  Report Type: 
  Country: None (occurrence: None)
  Receive Date: 20080326
  Receipt Date: 20080318
  Transmission Date: 20080703
  Serious: Yes (Other)
  Sender: FDA-Public Use
  Company Number: US-BAYER-200810584NA

PATIENT
  Age: 18 Year
  Sex: Female
  Weight: 86 kg

DRUGS (3)
  1. YAZ [Suspect]
     Indication: HORMONE REPLACEMENT THERAPY
     Route: 048
     Dates: start: 20071125, end: 20071213
  2. PERIBEX [Concomitant]
     Indication: GINGIVITIS ULCERATIVE
  3. TETRACYCLIN [Concomitant]
     Indication: GINGIVITIS ULCERATIVE

REACTIONS (3)
  - GINGIVAL BLEEDING [None]
  - GINGIVAL RECESSION [None]
  - GINGIVITIS ULCERATIVE [None]
